FAERS Safety Report 23055233 (Version 1)
Quarter: 2023Q4

REPORT INFORMATION
  Report Type: Spontaneous
  Country: US (occurrence: None)
  Receive Date: 20231011
  Receipt Date: 20231011
  Transmission Date: 20240110
  Serious: Yes (Life-Threatening)
  Sender: FDA-Public Use
  Company Number: None

PATIENT
  Age: 44 Year
  Sex: Female
  Weight: 58.5 kg

DRUGS (4)
  1. SLYND [Suspect]
     Active Substance: DROSPIRENONE
     Indication: Contraception
     Dosage: OTHER QUANTITY : 1 TABLET(S);?FREQUENCY : DAILY;?
     Route: 048
     Dates: start: 20201212, end: 20221208
  2. Olapatadine Nasal Spray [Concomitant]
  3. ADVIL [Concomitant]
     Active Substance: IBUPROFEN
  4. ALEVE [Concomitant]
     Active Substance: NAPROXEN SODIUM

REACTIONS (19)
  - Sensory disturbance [None]
  - Hot flush [None]
  - Paraesthesia oral [None]
  - Pruritus [None]
  - Asthenia [None]
  - Brain fog [None]
  - Dyspnoea [None]
  - Urticaria [None]
  - Seasonal allergy [None]
  - Feeling hot [None]
  - Paraesthesia [None]
  - Abdominal pain upper [None]
  - Diarrhoea [None]
  - Hypoaesthesia [None]
  - Hyperhidrosis [None]
  - Lung disorder [None]
  - Visual impairment [None]
  - Headache [None]
  - Headache [None]

NARRATIVE: CASE EVENT DATE: 20221103
